FAERS Safety Report 23604803 (Version 1)
Quarter: 2024Q1

REPORT INFORMATION
  Report Type: Report from Study
  Country: CO (occurrence: CO)
  Receive Date: 20240307
  Receipt Date: 20240307
  Transmission Date: 20240410
  Serious: Yes (Hospitalization)
  Sender: FDA-Public Use
  Company Number: CO-002147023-NVSC2024CO048659

PATIENT
  Sex: Female
  Weight: 89 kg

DRUGS (1)
  1. ELTROMBOPAG [Suspect]
     Active Substance: ELTROMBOPAG
     Indication: Bone marrow failure
     Dosage: 75 MG, QD
     Route: 048
     Dates: start: 20230718

REACTIONS (2)
  - Platelet count increased [Unknown]
  - Product use in unapproved indication [Unknown]
